FAERS Safety Report 4973111-X (Version None)
Quarter: 2006Q2

REPORT INFORMATION
  Report Type: 
  Country: None (occurrence: None)
  Receive Date: 20060414
  Receipt Date: 20041220
  Transmission Date: 20061013
  Serious: Yes (Death)
  Sender: FDA-Public Use
  Company Number: US-MERCK-0412USA02600

PATIENT
  Age: 59 Year
  Sex: Male
  Weight: 86 kg

DRUGS (2)
  1. VIOXX [Suspect]
     Indication: ARTHRALGIA
     Route: 048
     Dates: start: 20010701, end: 20021112
  2. EXCEDRIN (ACETAMINOPHEN (+) CAFFEINE) [Concomitant]
     Route: 065

REACTIONS (12)
  - ANXIETY [None]
  - ARTHRITIS [None]
  - CARDIAC ARREST [None]
  - CARDIO-RESPIRATORY ARREST [None]
  - CHRONIC OBSTRUCTIVE PULMONARY DISEASE [None]
  - CYANOSIS [None]
  - DEPRESSION [None]
  - DIARRHOEA [None]
  - HYPERLIPIDAEMIA [None]
  - LOSS OF LIBIDO [None]
  - MUSCLE SPASMS [None]
  - MYOCARDIAL INFARCTION [None]
